FAERS Safety Report 12948938 (Version 2)
Quarter: 2017Q1

REPORT INFORMATION
  Report Type: Spontaneous
  Country: US (occurrence: US)
  Receive Date: 20161116
  Receipt Date: 20170118
  Transmission Date: 20170428
  Serious: Yes (Other)
  Sender: FDA-Public Use
  Company Number: US-NORTHSTAR HEALTHCARE HOLDINGS-US-2016NSR000618

PATIENT

DRUGS (1)
  1. BACLOFEN. [Suspect]
     Active Substance: BACLOFEN
     Indication: PRODUCT USED FOR UNKNOWN INDICATION
     Dosage: 1.5 DF, TID
     Route: 048

REACTIONS (4)
  - Withdrawal syndrome [Unknown]
  - Drug effect decreased [Unknown]
  - Hallucination [Unknown]
  - Visual impairment [Unknown]
